FAERS Safety Report 9360970 (Version 2)
Quarter: 2013Q3

REPORT INFORMATION
  Report Type: Spontaneous
  Country: JP (occurrence: JP)
  Receive Date: 20130621
  Receipt Date: 20130827
  Transmission Date: 20140515
  Serious: Yes (Other)
  Sender: FDA-Public Use
  Company Number: JP-PFIZER INC-2013182444

PATIENT
  Age: 63 Year
  Sex: Male
  Weight: 51 kg

DRUGS (4)
  1. VFEND [Suspect]
     Indication: BRONCHOPULMONARY ASPERGILLOSIS
     Dosage: 300 MG, 2X/DAY
     Route: 042
     Dates: start: 20130611, end: 20130618
  2. TRAMCET [Interacting]
     Indication: POST HERPETIC NEURALGIA
     Dosage: 1 DF, 3X/DAY
     Route: 048
     Dates: start: 20130610, end: 20130617
  3. PROGRAF [Concomitant]
     Indication: RHEUMATIC DISORDER
     Dosage: 1 MG, 1X/DAY
     Route: 048
  4. NORVASC [Concomitant]
     Indication: HYPERTENSION
     Dosage: 25 MG, 1X/DAY
     Route: 048

REACTIONS (2)
  - Drug interaction [Unknown]
  - Delirium [Recovered/Resolved]
